FAERS Safety Report 7029516-9 (Version None)
Quarter: 2010Q4

REPORT INFORMATION
  Report Type: 
  Country: None (occurrence: None)
  Receive Date: 20101005
  Receipt Date: 20100930
  Transmission Date: 20110411
  Serious: Yes (Other)
  Sender: FDA-Public Use
  Company Number: CO-WYE-H17923310

PATIENT
  Sex: Female

DRUGS (8)
  1. RAPAMUNE [Suspect]
     Indication: PROPHYLAXIS AGAINST TRANSPLANT REJECTION
     Dosage: 1 MG TABLET (DOSE AND REGIMEN UNSPECIFIED)
     Route: 048
     Dates: start: 20091201, end: 20100401
  2. TACROLIMUS [Concomitant]
     Indication: PROPHYLAXIS AGAINST TRANSPLANT REJECTION
     Dosage: UNKNOWN
     Dates: start: 20070101, end: 20100401
  3. CALCIUM CARBONATE [Concomitant]
     Dosage: UNKNOWN
     Dates: start: 20070101, end: 20100401
  4. CLONIDINE [Concomitant]
     Dosage: UNKNOWN
     Dates: start: 20070101, end: 20100401
  5. OMEPRAZOLE [Concomitant]
     Dosage: UNKNOWN
     Dates: start: 20070101, end: 20100401
  6. CALCITRIOL [Concomitant]
     Dosage: UNKNOWN
     Dates: start: 20070101, end: 20100401
  7. MYCOPHENOLATE MOFETIL [Concomitant]
     Indication: PROPHYLAXIS AGAINST TRANSPLANT REJECTION
     Dosage: UNKNOWN
     Dates: start: 20070101, end: 20100401
  8. PREDNISOLONE [Concomitant]
     Indication: PROPHYLAXIS AGAINST TRANSPLANT REJECTION
     Dosage: UNKNOWN
     Dates: start: 20070101, end: 20100401

REACTIONS (1)
  - RENAL FAILURE [None]
